FAERS Safety Report 6099176-2 (Version None)
Quarter: 2009Q1

REPORT INFORMATION
  Report Type: 
  Country: None (occurrence: None)
  Receive Date: 20090302
  Receipt Date: 20090220
  Transmission Date: 20090719
  Serious: Yes (Hospitalization)
  Sender: FDA-Public Use
  Company Number: FR-GILEAD-2009-0020420

PATIENT
  Sex: Male
  Weight: 68 kg

DRUGS (13)
  1. VIREAD [Suspect]
     Indication: HIV INFECTION
     Route: 048
     Dates: start: 20080901, end: 20081016
  2. NEXAVAR [Suspect]
     Route: 048
     Dates: start: 20080924, end: 20081013
  3. LASIX [Concomitant]
  4. MODURECTIC [Concomitant]
  5. ZESTRIL [Concomitant]
  6. PREVISCAN [Concomitant]
  7. HUMALOG [Concomitant]
  8. NOVORAPID [Concomitant]
  9. NORVIR [Concomitant]
  10. INVIRASE [Concomitant]
  11. VIRAMUNE [Concomitant]
  12. ZIAGEN [Concomitant]
  13. ISENTRESS [Concomitant]

REACTIONS (4)
  - CARDIAC FAILURE [None]
  - CD4 LYMPHOCYTES DECREASED [None]
  - HYPOCALCAEMIA [None]
  - RENAL FAILURE [None]
